FAERS Safety Report 7987581-6 (Version None)
Quarter: 2011Q4

REPORT INFORMATION
  Report Type: 
  Country: None (occurrence: None)
  Receive Date: 20111216
  Receipt Date: 20110418
  Transmission Date: 20120403
  Serious: No
  Sender: FDA-Public Use
  Company Number: US-BRISTOL-MYERS SQUIBB COMPANY-15680796

PATIENT
  Age: 47 Year
  Sex: Male
  Weight: 79 kg

DRUGS (4)
  1. VALIUM [Concomitant]
  2. SEROQUEL [Concomitant]
  3. PAXIL [Suspect]
  4. ABILIFY [Suspect]
     Dosage: STARTED 3-4 WEEKS AGO

REACTIONS (2)
  - CONSTIPATION [None]
  - WEIGHT INCREASED [None]
